FAERS Safety Report 5047701-2 (Version None)
Quarter: 2006Q2

REPORT INFORMATION
  Report Type: 
  Country: None (occurrence: None)
  Receive Date: 20060601
  Receipt Date: 20060203
  Transmission Date: 20061013
  Serious: No
  Sender: FDA-Public Use
  Company Number: US200602000998

PATIENT
  Age: 59 Year
  Sex: Female

DRUGS (7)
  1. CYMBALTA [Suspect]
     Indication: DEPRESSION
     Dosage: 2 MG
     Dates: start: 20041201
  2. REMERON [Concomitant]
  3. KLONOPIN [Concomitant]
  4. LIPITOR [Concomitant]
  5. SYNTHROID [Concomitant]
  6. DETROL - SLOW RELEASE (TOLTERODINE L-TARTRATE) [Concomitant]
  7. HORMONES AND RELATED AGENTS [Concomitant]

REACTIONS (2)
  - NAUSEA [None]
  - RETCHING [None]
